FAERS Safety Report 8973788 (Version 1)
Quarter: 2012Q4

REPORT INFORMATION
  Report Type: 
  Country: US (occurrence: US)
  Receive Date: 20121218
  Receipt Date: 20121218
  Transmission Date: 20130627
  Serious: No
  Sender: FDA-Public Use
  Company Number: US-BRISTOL-MYERS SQUIBB COMPANY-16413445

PATIENT
  Age: 43 Year
  Sex: Female

DRUGS (4)
  1. ABILIFY TABS 5 MG [Suspect]
     Dosage: for past 3 months
  2. LEXAPRO [Concomitant]
  3. TRAZODONE HCL [Concomitant]
  4. VISTARIL [Concomitant]

REACTIONS (1)
  - White blood cell count decreased [Unknown]
